FAERS Safety Report 18473474 (Version 1)
Quarter: 2020Q4

REPORT INFORMATION
  Report Type: Spontaneous
  Country: US (occurrence: US)
  Receive Date: 20201106
  Receipt Date: 20201106
  Transmission Date: 20210114
  Serious: Yes (Death)
  Sender: FDA-Public Use
  Company Number: None

PATIENT
  Sex: Male

DRUGS (5)
  1. RIBAVIRIN. [Concomitant]
     Active Substance: RIBAVIRIN
     Dates: start: 20200923, end: 20201020
  2. CLARITIN [Concomitant]
     Active Substance: LORATADINE
     Dates: start: 20200923, end: 20201020
  3. SOFOSBUVIR/VELPATASVIR [Suspect]
     Active Substance: SOFOSBUVIR\VELPATASVIR
     Route: 048
     Dates: start: 20200923, end: 20201020
  4. NEXIUM [Concomitant]
     Active Substance: ESOMEPRAZOLE MAGNESIUM
     Dates: start: 20200923, end: 20201020
  5. TUMS [Concomitant]
     Active Substance: CALCIUM CARBONATE
     Dates: start: 20200923, end: 20201020

REACTIONS (1)
  - Death [None]
